FAERS Safety Report 25212986 (Version 1)
Quarter: 2025Q2

REPORT INFORMATION
  Report Type: Spontaneous
  Country: GB (occurrence: GB)
  Receive Date: 20250418
  Receipt Date: 20250418
  Transmission Date: 20250717
  Serious: Yes (Other)
  Sender: MYLAN
  Company Number: None

PATIENT
  Age: 62 Year
  Sex: Female
  Weight: 68 kg

DRUGS (4)
  1. DOXYCYCLINE [Suspect]
     Active Substance: DOXYCYCLINE
     Indication: Malaria prophylaxis
     Dosage: 100 MILLIGRAM, QD(ONCE A DAY)
     Dates: start: 20241113, end: 20250410
  2. ATORVASTATIN [Concomitant]
     Active Substance: ATORVASTATIN
     Indication: Blood cholesterol increased
  3. PROPRANOLOL [Concomitant]
     Active Substance: PROPRANOLOL HYDROCHLORIDE
     Indication: Anxiety
  4. METFORMIN [Concomitant]
     Active Substance: METFORMIN HYDROCHLORIDE
     Indication: Diabetes mellitus

REACTIONS (5)
  - Blister [Not Recovered/Not Resolved]
  - Photosensitivity reaction [Not Recovered/Not Resolved]
  - Rash erythematous [Not Recovered/Not Resolved]
  - Pruritus [Not Recovered/Not Resolved]
  - Dry skin [Unknown]

NARRATIVE: CASE EVENT DATE: 20250118
